FAERS Safety Report 7506921-5 (Version None)
Quarter: 2011Q2

REPORT INFORMATION
  Report Type: 
  Country: None (occurrence: None)
  Receive Date: 20110526
  Receipt Date: 20110513
  Transmission Date: 20111010
  Serious: Yes (Hospitalization, Other)
  Sender: FDA-Public Use
  Company Number: PHHY2011JP35937

PATIENT
  Age: 27 Year
  Sex: Female

DRUGS (13)
  1. CYCLOSPORINE [Suspect]
     Dosage: 3 MG/KG
     Route: 048
  2. METHOTREXATE [Concomitant]
     Dosage: UNK
  3. CYCLOSPORINE [Suspect]
     Dosage: 5.6 MG/KG
     Route: 048
  4. CYCLOSPORINE [Suspect]
     Dosage: UNK
     Dates: end: 20010101
  5. MALTOSE [Concomitant]
     Dosage: UNK
  6. PREDNISOLONE [Concomitant]
     Dosage: 30 MG/DAY
  7. ETRETINATE [Concomitant]
     Dosage: UNK
  8. CYCLOSPORINE [Suspect]
     Indication: PUSTULAR PSORIASIS
     Dosage: 4 MG/KG
     Route: 048
  9. CYCLOSPORINE [Suspect]
     Dosage: 4 MG/KG
     Route: 048
  10. CYCLOSPORINE [Suspect]
     Dosage: 6 MG/KG
     Route: 048
  11. PREDNISOLONE [Concomitant]
     Indication: PUSTULAR PSORIASIS
     Route: 048
  12. CYCLOSPORINE [Suspect]
     Dosage: 4.5 MG/KG
     Route: 048
  13. STEROIDS NOS [Concomitant]
     Dosage: UNK

REACTIONS (19)
  - FINGER DEFORMITY [None]
  - PYREXIA [None]
  - ERYTHEMA [None]
  - NORMAL NEWBORN [None]
  - PSORIASIS [None]
  - ANAEMIA [None]
  - CAESAREAN SECTION [None]
  - FOETAL GROWTH RESTRICTION [None]
  - SKIN EXFOLIATION [None]
  - DRUG EXPOSURE DURING PREGNANCY [None]
  - SCAB [None]
  - ASPHYXIA [None]
  - RASH [None]
  - SKIN EROSION [None]
  - HYPOPROTEINAEMIA [None]
  - FATIGUE [None]
  - BLISTER [None]
  - WHITE BLOOD CELL COUNT INCREASED [None]
  - C-REACTIVE PROTEIN INCREASED [None]
